FAERS Safety Report 6519352-1 (Version None)
Quarter: 2009Q4

REPORT INFORMATION
  Report Type: 
  Country: None (occurrence: None)
  Receive Date: 20091228
  Receipt Date: 20091222
  Transmission Date: 20100525
  Serious: Yes (Death)
  Sender: FDA-Public Use
  Company Number: JP-BAYER-200915246BYL

PATIENT
  Age: 80 Year
  Sex: Male
  Weight: 56 kg

DRUGS (9)
  1. NEXAVAR [Suspect]
     Indication: HEPATIC NEOPLASM MALIGNANT
     Dosage: UNIT DOSE: 200 MG
     Route: 048
     Dates: start: 20091102, end: 20091214
  2. MITOMYCIN [Concomitant]
     Indication: HEPATIC NEOPLASM MALIGNANT
     Route: 013
     Dates: start: 20090929
  3. IA-CALL [Concomitant]
     Indication: HEPATIC NEOPLASM MALIGNANT
     Route: 013
     Dates: start: 20090929
  4. FARMORUBICIN [Concomitant]
     Indication: HEPATIC NEOPLASM MALIGNANT
     Route: 013
     Dates: start: 20090929
  5. URSO 250 [Concomitant]
     Indication: HEPATIC FUNCTION ABNORMAL
     Dosage: UNIT DOSE: 100 MG
     Route: 048
     Dates: start: 20091102, end: 20091214
  6. TAURINE [Concomitant]
     Indication: HEPATIC FUNCTION ABNORMAL
     Dosage: UNIT DOSE: 1.02 G
     Route: 048
     Dates: start: 20091102, end: 20091214
  7. INCHIN-CO-TO [Concomitant]
     Indication: HEPATIC FUNCTION ABNORMAL
     Dosage: UNIT DOSE: 2.5 G
     Route: 048
     Dates: start: 20091102, end: 20091214
  8. HANGE-SHASHIN-TO [Concomitant]
     Indication: DIARRHOEA
     Dosage: UNIT DOSE: 2.5 G
     Route: 048
     Dates: start: 20091207, end: 20091214
  9. LOPEMIN [Concomitant]
     Indication: DIARRHOEA
     Route: 048
     Dates: start: 20091207, end: 20091214

REACTIONS (1)
  - CARDIO-RESPIRATORY ARREST [None]
